FAERS Safety Report 10175779 (Version 2)
Quarter: 2014Q3

REPORT INFORMATION
  Report Type: Spontaneous
  Country: US (occurrence: None)
  Receive Date: 20140425
  Receipt Date: 20140725
  Transmission Date: 20150326
  Serious: No
  Sender: FDA-Public Use
  Company Number: AP356-00555-SPO-US

PATIENT
  Age: 54 Year
  Sex: Female

DRUGS (1)
  1. BELVIQ [Suspect]
     Active Substance: LORCASERIN HYDROCHLORIDE
     Indication: WEIGHT DECREASED
     Dosage: 2 IN 1 DAY
     Route: 048
     Dates: start: 20140324

REACTIONS (8)
  - Nausea [None]
  - Hypersomnia [None]
  - Headache [None]
  - Pain in extremity [None]
  - Dizziness [None]
  - Arthralgia [None]
  - Fatigue [None]
  - Chills [None]

NARRATIVE: CASE EVENT DATE: 20140324
